FAERS Safety Report 7481899-1 (Version None)
Quarter: 2011Q2

REPORT INFORMATION
  Report Type: 
  Country: None (occurrence: None)
  Receive Date: 20110516
  Receipt Date: 20110328
  Transmission Date: 20111010
  Serious: Yes (Hospitalization)
  Sender: FDA-Public Use
  Company Number: US-BAYER-201035903NA

PATIENT
  Sex: Female
  Weight: 52.154 kg

DRUGS (4)
  1. YASMIN [Suspect]
     Indication: PREMENSTRUAL SYNDROME
     Dosage: UNK
     Route: 048
     Dates: start: 20020801, end: 20070101
  2. ANTIBIOTICS [Concomitant]
  3. YAZ [Suspect]
     Indication: PREMENSTRUAL SYNDROME
     Dosage: UNK
     Dates: start: 20020801, end: 20070101
  4. NSAID'S [Concomitant]

REACTIONS (1)
  - CHOLELITHIASIS [None]
